FAERS Safety Report 10146696 (Version 3)
Quarter: 2014Q2

REPORT INFORMATION
  Report Type: Spontaneous
  Country: US (occurrence: US)
  Receive Date: 20140501
  Receipt Date: 20140627
  Transmission Date: 20141212
  Serious: No
  Sender: FDA-Public Use
  Company Number: US-PFIZER INC-2014117874

PATIENT
  Age: 74 Year
  Sex: Male

DRUGS (13)
  1. SUTENT [Suspect]
     Dosage: 50 MG, UNK
     Route: 048
     Dates: start: 20140306, end: 20140424
  2. SUTENT [Suspect]
     Dosage: 25 MG AND 12.5 MG, DAILY
     Route: 048
     Dates: start: 20140426
  3. PRILOSEC [Concomitant]
     Dosage: UNK
  4. ALLOPURINOL [Concomitant]
     Dosage: UNK
  5. DOXYCYCLINE [Concomitant]
     Dosage: UNK
  6. ATORVASTATIN [Concomitant]
     Dosage: UNK
  7. AMLODIPINE/BENAZEPRIL [Concomitant]
     Dosage: UNK
  8. CORICIDIN [Concomitant]
     Dosage: UNK
  9. MEGESTROL [Concomitant]
     Dosage: UNK
  10. PROCHLORPERAZINE [Concomitant]
     Dosage: UNK
  11. CLARITIN [Concomitant]
  12. HYDROCODONE W/ACETAMINOPHEN [Concomitant]
     Dosage: HYDROCODONE BITARTRATE 10-PARACETAMOL 325 , UNK
  13. BIOTENE [Concomitant]
     Dosage: UNK

REACTIONS (6)
  - Blood electrolytes decreased [Unknown]
  - Blood magnesium decreased [Unknown]
  - Decreased appetite [Unknown]
  - Pyrexia [Unknown]
  - Glossodynia [Unknown]
  - Glossitis [Unknown]
